FAERS Safety Report 4438456-0 (Version None)
Quarter: 2004Q3

REPORT INFORMATION
  Report Type: 
  Country: None (occurrence: None)
  Receive Date: 20040728
  Receipt Date: 20040324
  Transmission Date: 20050211
  Serious: No
  Sender: FDA-Public Use
  Company Number: USA040363045

PATIENT
  Age: 53 Year
  Sex: Female
  Weight: 68 kg

DRUGS (2)
  1. STRATTERA [Suspect]
     Dosage: 40 MG IN THE EVENING
     Dates: start: 20040315
  2. AMITRIPTYLINE HCL [Concomitant]

REACTIONS (3)
  - ASTHENIA [None]
  - FATIGUE [None]
  - FEELING ABNORMAL [None]
